FAERS Safety Report 21601020 (Version 1)
Quarter: 2022Q4

REPORT INFORMATION
  Report Type: Spontaneous
  Country: US (occurrence: US)
  Receive Date: 20221116
  Receipt Date: 20221116
  Transmission Date: 20230113
  Serious: No
  Sender: FDA-Public Use
  Company Number: US-AMGEN-USASP2022194304

PATIENT
  Age: 2 Year
  Sex: Female
  Weight: 10.8 kg

DRUGS (3)
  1. EPOETIN ALFA [Suspect]
     Active Substance: ERYTHROPOIETIN
     Indication: Prophylaxis
     Dosage: UNK UNK, 3 TIMES/WK, 50 UNITS/KG
     Route: 040
  2. EPOETIN ALFA [Suspect]
     Active Substance: ERYTHROPOIETIN
     Indication: Off label use
  3. FERROUS SULFATE [Concomitant]
     Active Substance: FERROUS SULFATE
     Dosage: 3 MILLIGRAM/KILOGRAM, BID, ENTERAL

REACTIONS (1)
  - Off label use [Unknown]
